FAERS Safety Report 17822197 (Version 3)
Quarter: 2021Q1

REPORT INFORMATION
  Report Type: Spontaneous
  Country: US (occurrence: US)
  Receive Date: 20200526
  Receipt Date: 20210124
  Transmission Date: 20210419
  Serious: Yes (Hospitalization)
  Sender: FDA-Public Use
  Company Number: US-TEVA-2020-US-1239331

PATIENT
  Age: 22 Year
  Sex: Female

DRUGS (6)
  1. VANCOMYCIN [Interacting]
     Active Substance: VANCOMYCIN
     Indication: EVIDENCE BASED TREATMENT
     Dosage: 3 GRAM DAILY;
     Route: 042
  2. TOBRAMYCIN. [Interacting]
     Active Substance: TOBRAMYCIN
     Indication: ANTIBIOTIC THERAPY
  3. VANCOMYCIN [Interacting]
     Active Substance: VANCOMYCIN
     Indication: ANTIBIOTIC THERAPY
  4. GENTAMICIN. [Interacting]
     Active Substance: GENTAMICIN
     Indication: ANTIBIOTIC THERAPY
  5. TOBRAMYCIN. [Suspect]
     Active Substance: TOBRAMYCIN
     Indication: EVIDENCE BASED TREATMENT
     Dosage: 180 MILLIGRAM DAILY;
     Route: 042
  6. GENTAMICIN. [Interacting]
     Active Substance: GENTAMICIN
     Indication: EVIDENCE BASED TREATMENT
     Route: 065

REACTIONS (5)
  - Toxicity to various agents [Recovered/Resolved]
  - Drug interaction [Recovered/Resolved]
  - Anuria [Recovered/Resolved]
  - Renal tubular necrosis [Recovered/Resolved]
  - Acute kidney injury [Recovered/Resolved]
